FAERS Safety Report 16196975 (Version 1)
Quarter: 2019Q2

REPORT INFORMATION
  Report Type: Spontaneous
  Country: FR (occurrence: FR)
  Receive Date: 20190415
  Receipt Date: 20190415
  Transmission Date: 20190711
  Serious: Yes (Hospitalization)
  Sender: FDA-Public Use
  Company Number: FR-BEH-2011030493

PATIENT
  Age: 56 Year
  Sex: Male
  Weight: 65 kg

DRUGS (2)
  1. SANDOGLOBULINE [Suspect]
     Active Substance: HUMAN IMMUNOGLOBULIN G
     Dosage: 24 G, QD
     Route: 042
     Dates: start: 20111026, end: 20111030
  2. SANDOGLOBULINE [Suspect]
     Active Substance: HUMAN IMMUNOGLOBULIN G
     Indication: MULTIFOCAL MOTOR NEUROPATHY
     Dosage: 3 G, QD
     Route: 042
     Dates: start: 20111026, end: 20111030

REACTIONS (1)
  - Toxic skin eruption [Recovered/Resolved]

NARRATIVE: CASE EVENT DATE: 201111
